FAERS Safety Report 6655456-0 (Version None)
Quarter: 2010Q1

REPORT INFORMATION
  Report Type: 
  Country: None (occurrence: None)
  Receive Date: 20100329
  Receipt Date: 20100317
  Transmission Date: 20100710
  Serious: Yes (Other)
  Sender: FDA-Public Use
  Company Number: CN-PFIZER INC-2010036016

PATIENT
  Age: 29 Year
  Sex: Female

DRUGS (3)
  1. ZITHROMAX [Suspect]
     Indication: UPPER RESPIRATORY TRACT INFECTION
     Dosage: 250 MG, 2X/DAY
     Route: 048
     Dates: start: 20100315, end: 20100315
  2. ZITHROMAX [Suspect]
     Dosage: 250 MG, 1X/DAY
     Route: 048
     Dates: start: 20100316, end: 20100317
  3. ZITHROMAX [Suspect]
     Dosage: UNK
     Route: 042
     Dates: start: 20100318, end: 20100318

REACTIONS (7)
  - BLOOD PRESSURE DECREASED [None]
  - CHEST DISCOMFORT [None]
  - DRUG INEFFECTIVE [None]
  - HEART RATE INCREASED [None]
  - NAUSEA [None]
  - TACHYPNOEA [None]
  - VOMITING [None]
